FAERS Safety Report 20214948 (Version 1)
Quarter: 2021Q4

REPORT INFORMATION
  Report Type: Spontaneous
  Country: US (occurrence: US)
  Receive Date: 20211222
  Receipt Date: 20211222
  Transmission Date: 20220303
  Serious: No
  Sender: FDA-Public Use
  Company Number: US-TOLMAR, INC.-21US031821

PATIENT

DRUGS (3)
  1. KETOCONAZOLE [Suspect]
     Active Substance: KETOCONAZOLE
     Indication: Alopecia
     Dosage: 1-2 TIMES A WEEK
     Route: 003
     Dates: start: 2020
  2. KETOCONAZOLE [Suspect]
     Active Substance: KETOCONAZOLE
     Indication: Dandruff
  3. UNSPECIFIED INGREDIENT [Suspect]
     Active Substance: UNSPECIFIED INGREDIENT
     Indication: Product used for unknown indication
     Route: 048

REACTIONS (2)
  - Off label use [Unknown]
  - Rash [Unknown]
